FAERS Safety Report 9543397 (Version 1)
Quarter: 2013Q3

REPORT INFORMATION
  Report Type: Spontaneous
  Country: IT (occurrence: IT)
  Receive Date: 20130923
  Receipt Date: 20130923
  Transmission Date: 20140515
  Serious: Yes (Other)
  Sender: FDA-Public Use
  Company Number: IT-PFIZER INC-2013271025

PATIENT
  Age: 34 Year
  Sex: Male

DRUGS (4)
  1. LYRICA [Suspect]
     Dosage: UNK
     Dates: start: 20130101
  2. REMERON [Suspect]
     Dosage: UNK
     Dates: start: 20130101
  3. VALIUM [Concomitant]
  4. SEQUACOR [Concomitant]

REACTIONS (1)
  - Psychomotor hyperactivity [Recovering/Resolving]
